FAERS Safety Report 5999091-6 (Version None)
Quarter: 2008Q4

REPORT INFORMATION
  Report Type: 
  Country: None (occurrence: None)
  Receive Date: 20081211
  Receipt Date: 20081208
  Transmission Date: 20090506
  Serious: Yes (Hospitalization)
  Sender: FDA-Public Use
  Company Number: C2008-200-1005

PATIENT
  Sex: Male

DRUGS (1)
  1. CEFAZOLIN, UNKNOWN STRENGTH AND MFR [Suspect]

REACTIONS (3)
  - POOR QUALITY DRUG ADMINISTERED [None]
  - STAPHYLOCOCCAL INFECTION [None]
  - TRANSMISSION OF AN INFECTIOUS AGENT VIA A MEDICINAL PRODUCT [None]
